FAERS Safety Report 9167508 (Version 1)
Quarter: 2013Q1

REPORT INFORMATION
  Report Type: Spontaneous
  Country: GB (occurrence: None)
  Receive Date: 20130304
  Receipt Date: 20130304
  Transmission Date: 20140127
  Serious: Yes (Hospitalization)
  Sender: FDA-Public Use
  Company Number: 2013-03037

PATIENT
  Sex: Male

DRUGS (7)
  1. ACYCLOVIR (ACYCLOVIR) [Suspect]
     Indication: PROPHYLAXIS
  2. PHENYTOIN (PHENYTOIN) [Concomitant]
  3. LANSOPRAZOLE (LANSOPRAZOLE) [Concomitant]
  4. PREDNISOLONE (PREDNISOLONE) [Concomitant]
  5. BETAHISTINE (BETAHISTINE) [Concomitant]
  6. LOSARTAN (LOSARTAN) [Concomitant]
  7. DIGOXIN (DIGOXIN) [Concomitant]

REACTIONS (2)
  - Subdural haematoma [None]
  - Alanine aminotransferase increased [None]
